FAERS Safety Report 7826724-1 (Version None)
Quarter: 2011Q4

REPORT INFORMATION
  Report Type: 
  Country: None (occurrence: None)
  Receive Date: 20111017
  Receipt Date: 20111003
  Transmission Date: 20120403
  Serious: Yes (Death, Hospitalization, Other)
  Sender: FDA-Public Use
  Company Number: 010174

PATIENT
  Age: 30 Year
  Sex: Male

DRUGS (4)
  1. CYCLOSPORINE [Concomitant]
  2. CYCLOPHOSPHAMIDE [Concomitant]
  3. BUSULFAN [Suspect]
     Dosage: 16 MG/KG, ORAL
     Route: 048
  4. ATG 9ANTILYMPHOCYTE IMMUNOGLOBULIN) (HORSE)) [Concomitant]

REACTIONS (20)
  - LUNG INFECTION [None]
  - MUCOSAL INFLAMMATION [None]
  - ALANINE AMINOTRANSFERASE INCREASED [None]
  - NEPHROTIC SYNDROME [None]
  - ISCHAEMIC STROKE [None]
  - CYTOMEGALOVIRUS INFECTION [None]
  - ACUTE GRAFT VERSUS HOST DISEASE IN SKIN [None]
  - C-REACTIVE PROTEIN INCREASED [None]
  - TOXICITY TO VARIOUS AGENTS [None]
  - OEDEMA PERIPHERAL [None]
  - GAMMA-GLUTAMYLTRANSFERASE INCREASED [None]
  - BRONCHIOLITIS [None]
  - GLOMERULONEPHRITIS MINIMAL LESION [None]
  - HYPERCHOLESTEROLAEMIA [None]
  - DIARRHOEA [None]
  - CYSTITIS HAEMORRHAGIC [None]
  - ASPARTATE AMINOTRANSFERASE INCREASED [None]
  - WEIGHT INCREASED [None]
  - THROMBOCYTOPENIA [None]
  - HEPATIC ENZYME INCREASED [None]
